FAERS Safety Report 14938811 (Version 1)
Quarter: 2018Q2

REPORT INFORMATION
  Report Type: Spontaneous
  Country: GB (occurrence: GB)
  Receive Date: 20180525
  Receipt Date: 20180525
  Transmission Date: 20180711
  Serious: Yes (Other)
  Sender: FDA-Public Use
  Company Number: GB-TEVA-2018-GB-897424

PATIENT
  Age: 51 Year
  Sex: Female
  Weight: 59.87 kg

DRUGS (2)
  1. TEVA UK ANASTROZOLE [Suspect]
     Active Substance: ANASTROZOLE
     Indication: BREAST CANCER
     Dosage: 1 MILLIGRAM DAILY;
     Route: 048
     Dates: start: 20170831, end: 20171020
  2. ADCAL-D3 [Concomitant]
     Active Substance: CALCIUM CARBONATE\CHOLECALCIFEROL
     Route: 065

REACTIONS (7)
  - Carpal tunnel syndrome [Not Recovered/Not Resolved]
  - Arthralgia [Recovering/Resolving]
  - Depression suicidal [Recovered/Resolved]
  - Vision blurred [Recovered/Resolved with Sequelae]
  - Cystitis [Recovered/Resolved]
  - Bone pain [Recovered/Resolved]
  - Chills [Recovered/Resolved]

NARRATIVE: CASE EVENT DATE: 20170831
